FAERS Safety Report 8984438 (Version 1)
Quarter: 2012Q4

REPORT INFORMATION
  Report Type: 
  Country: FR (occurrence: FR)
  Receive Date: 20121225
  Receipt Date: 20121225
  Transmission Date: 20130627
  Serious: Yes (Hospitalization)
  Sender: FDA-Public Use
  Company Number: FR-SANOFI-AVENTIS-2012SA092349

PATIENT
  Age: 91 Year
  Sex: Female

DRUGS (7)
  1. LASILIX [Suspect]
     Indication: DRUG USE FOR UNKNOWN INDICATION
     Dosage: scored tablet, dose increased
     Route: 048
     Dates: start: 20120317, end: 20120320
  2. LASILIX [Suspect]
     Indication: DRUG USE FOR UNKNOWN INDICATION
     Dosage: scored tablet
     Route: 048
  3. INEXIUM [Concomitant]
     Dosage: in the evening
     Route: 048
  4. FERROUS SULFATE [Concomitant]
     Route: 048
  5. TAHOR [Concomitant]
     Route: 048
  6. RAMIPRIL [Concomitant]
     Dosage: in morning
     Route: 048
  7. PREVISCAN [Concomitant]
     Dates: end: 20120317

REACTIONS (3)
  - Arthritis [Recovered/Resolved]
  - Arthralgia [Recovered/Resolved]
  - Arthralgia [Recovered/Resolved]
